FAERS Safety Report 5188603-0 (Version None)
Quarter: 2006Q4

REPORT INFORMATION
  Report Type: 
  Country: None (occurrence: None)
  Receive Date: 20061214
  Receipt Date: 20061205
  Transmission Date: 20070319
  Serious: Yes (Other)
  Sender: FDA-Public Use
  Company Number: 2006149421

PATIENT
  Sex: Female
  Weight: 81.6475 kg

DRUGS (5)
  1. LIPITOR [Suspect]
     Indication: BLOOD CHOLESTEROL INCREASED
     Dosage: 1 IN 1 D
     Dates: start: 20060901, end: 20060920
  2. ZETIA [Suspect]
     Indication: BLOOD CHOLESTEROL INCREASED
     Dosage: 10 MG (10 MG,1 IN 1 D)
     Dates: end: 20060920
  3. SINEMET CR [Concomitant]
  4. MIRAPEX [Concomitant]
  5. ALL OTHER THERAPEUTIC PRODUCTS [Concomitant]

REACTIONS (4)
  - CONDITION AGGRAVATED [None]
  - MUSCLE SPASMS [None]
  - PARKINSON'S DISEASE [None]
  - RHABDOMYOLYSIS [None]
